FAERS Safety Report 24377537 (Version 1)
Quarter: 2024Q3

REPORT INFORMATION
  Report Type: Spontaneous
  Country: GB (occurrence: GB)
  Receive Date: 20240930
  Receipt Date: 20240930
  Transmission Date: 20241016
  Serious: Yes (Hospitalization, Other)
  Sender: ACCORD
  Company Number: None

PATIENT
  Age: 79 Year
  Sex: Female

DRUGS (8)
  1. ROSUVASTATIN CALCIUM [Suspect]
     Active Substance: ROSUVASTATIN CALCIUM
     Indication: Prophylaxis
     Dosage: 20MG AT NIGHT
     Dates: start: 20221005, end: 20240917
  2. ISOSORBIDE [Concomitant]
     Active Substance: ISOSORBIDE
  3. ASPIRIN [Concomitant]
     Active Substance: ASPIRIN
  4. AMITRIPTYLINE [Concomitant]
     Active Substance: AMITRIPTYLINE
  5. MEBEVERINE [Concomitant]
     Active Substance: MEBEVERINE
  6. RAMIPRIL [Concomitant]
     Active Substance: RAMIPRIL
  7. LANSOPRAZOLE [Concomitant]
     Active Substance: LANSOPRAZOLE
  8. BISOPROLOL [Concomitant]
     Active Substance: BISOPROLOL\BISOPROLOL FUMARATE

REACTIONS (1)
  - Jaundice cholestatic [Recovered/Resolved]

NARRATIVE: CASE EVENT DATE: 20240910
